FAERS Safety Report 20225618 (Version 2)
Quarter: 2022Q1

REPORT INFORMATION
  Report Type: Spontaneous
  Country: US (occurrence: US)
  Receive Date: 20211224
  Receipt Date: 20220311
  Transmission Date: 20220423
  Serious: Yes (Death)
  Sender: FDA-Public Use
  Company Number: US-NOVARTISTESTPH-NVSC2021US295261

PATIENT
  Sex: Female

DRUGS (1)
  1. VOTRIENT [Suspect]
     Active Substance: PAZOPANIB HYDROCHLORIDE
     Indication: Malignant neoplasm of thorax
     Dosage: 800 MG, QD
     Route: 048
     Dates: start: 202107

REACTIONS (3)
  - Malignant neoplasm progression [Fatal]
  - Malignant neoplasm of thorax [Fatal]
  - Blood pressure increased [Unknown]
